FAERS Safety Report 7983313-6 (Version None)
Quarter: 2011Q4

REPORT INFORMATION
  Report Type: 
  Country: None (occurrence: None)
  Receive Date: 20111215
  Receipt Date: 20111212
  Transmission Date: 20120403
  Serious: No
  Sender: FDA-Public Use
  Company Number: US-BAYER-2011-120251

PATIENT
  Age: 36 Year
  Sex: Female
  Weight: 109 kg

DRUGS (3)
  1. ALEVE (CAPLET) [Suspect]
     Indication: BACK PAIN
     Dosage: 2 DF, ONCE
     Route: 048
     Dates: start: 20111209, end: 20111209
  2. LISINOPRIL [Concomitant]
  3. CELEXA [Concomitant]

REACTIONS (2)
  - DRY THROAT [None]
  - GLOSSODYNIA [None]
